FAERS Safety Report 6495281-7 (Version None)
Quarter: 2009Q4

REPORT INFORMATION
  Report Type: 
  Country: None (occurrence: None)
  Receive Date: 20091214
  Receipt Date: 20090521
  Transmission Date: 20100525
  Serious: No
  Sender: FDA-Public Use
  Company Number: US-BRISTOL-MYERS SQUIBB COMPANY-14633739

PATIENT
  Age: 63 Year
  Sex: Female

DRUGS (8)
  1. ABILIFY [Suspect]
     Indication: BIPOLAR II DISORDER
  2. SEROQUEL [Concomitant]
     Dosage: DOSE INCREASED TO 25-50MG
  3. LAMICTAL [Concomitant]
  4. ZOLOFT [Concomitant]
  5. KLONOPIN [Concomitant]
  6. AMBIEN [Concomitant]
  7. DIOVAN [Concomitant]
  8. EVISTA [Concomitant]

REACTIONS (2)
  - AKATHISIA [None]
  - TARDIVE DYSKINESIA [None]
